FAERS Safety Report 16086153 (Version 1)
Quarter: 2019Q1

REPORT INFORMATION
  Report Type: Report from Study
  Country: DE (occurrence: DE)
  Receive Date: 20190318
  Receipt Date: 20190318
  Transmission Date: 20190418
  Serious: Yes (Death)
  Sender: FDA-Public Use
  Company Number: DE-PFIZER INC-2019116706

PATIENT
  Age: 69 Year
  Sex: Female

DRUGS (8)
  1. PREDNISOLON [PREDNISOLONE] [Concomitant]
     Active Substance: PREDNISOLONE
  2. METHOTREXATE SODIUM. [Suspect]
     Active Substance: METHOTREXATE SODIUM
     Indication: RHEUMATOID ARTHRITIS
     Dosage: 15 MG, WEEKLY
     Route: 065
  3. ZOPICLON [Concomitant]
     Active Substance: ZOPICLONE
  4. TOCILIZUMAB. [Suspect]
     Active Substance: TOCILIZUMAB
     Indication: RHEUMATOID ARTHRITIS
     Route: 065
  5. RAMIPRIL. [Concomitant]
     Active Substance: RAMIPRIL
  6. PROLIA [Concomitant]
     Active Substance: DENOSUMAB
  7. NO SUBJECT DRUG [Suspect]
     Active Substance: UNSPECIFIED INGREDIENT
     Dosage: NO DOSE GIVEN
  8. TILIDIN [Concomitant]
     Active Substance: NALOXONE HYDROCHLORIDE\TILIDINE HYDROCHLORIDE

REACTIONS (2)
  - Sudden death [Fatal]
  - Periodontitis [Unknown]

NARRATIVE: CASE EVENT DATE: 20170410
